FAERS Safety Report 9113753 (Version 2)
Quarter: 2013Q1

REPORT INFORMATION
  Report Type: Report from Study
  Country: US (occurrence: US)
  Receive Date: 20130208
  Receipt Date: 20130227
  Transmission Date: 20140127
  Serious: Yes (Hospitalization)
  Sender: FDA-Public Use
  Company Number: US-ROCHE-1183369

PATIENT
  Age: 69 Year
  Sex: Female
  Weight: 66.3 kg

DRUGS (6)
  1. RITUXIMAB [Suspect]
     Indication: CHRONIC LYMPHOCYTIC LEUKAEMIA
     Route: 042
     Dates: start: 20110428
  2. CAL-101 [Suspect]
     Indication: CHRONIC LYMPHOCYTIC LEUKAEMIA
     Route: 048
     Dates: start: 20110428, end: 20110510
  3. CAL-101 [Suspect]
     Route: 048
     Dates: start: 20110519
  4. BENDAMUSTINE [Suspect]
     Indication: CHRONIC LYMPHOCYTIC LEUKAEMIA
     Route: 042
     Dates: start: 20110428
  5. TRICOR [Concomitant]
     Route: 048
  6. VITAMIN B COMPLEX [Concomitant]
     Route: 048

REACTIONS (2)
  - Pyrexia [Recovered/Resolved]
  - Influenza like illness [Recovered/Resolved]
